FAERS Safety Report 8816435 (Version 2)
Quarter: 2012Q4

REPORT INFORMATION
  Report Type: Spontaneous
  Country: JP (occurrence: None)
  Receive Date: 20120927
  Receipt Date: 20121002
  Transmission Date: 20130627
  Serious: Yes (Other)
  Sender: FDA-Public Use
  Company Number: TPA2012A07068

PATIENT
  Age: 72 Year
  Sex: Male

DRUGS (7)
  1. FEBURIC (FEBUXOSTAT) [Suspect]
     Indication: GOUT
     Route: 048
     Dates: start: 20120828, end: 20120830
  2. CRESTOR (ROSUVASTATIN CALCIUM) [Concomitant]
  3. BAYASPIRIN (ACETYLSALICYLIC ACID) [Concomitant]
  4. FLIVAS (NAFTOPIDIL) [Concomitant]
  5. ACINON (NIZATIDINE) [Concomitant]
  6. THEODUR (THEOPHYLLINE) [Concomitant]
  7. ADJUST A (SENNA ALEXANDRINA LEAF) [Concomitant]

REACTIONS (2)
  - Rash generalised [None]
  - Gastric ulcer [None]
